FAERS Safety Report 14609955 (Version 1)
Quarter: 2018Q1

REPORT INFORMATION
  Report Type: Spontaneous
  Country: US (occurrence: US)
  Receive Date: 20180307
  Receipt Date: 20180307
  Transmission Date: 20180509
  Serious: Yes (Other)
  Sender: FDA-Public Use
  Company Number: None

PATIENT
  Age: 43 Year
  Sex: Female
  Weight: 147.6 kg

DRUGS (11)
  1. ATORVASTATIN 10MG [Concomitant]
     Active Substance: ATORVASTATIN
  2. DICLOFENAC 75MG [Concomitant]
     Active Substance: DICLOFENAC
  3. ZESTORETIC 20-25 [Concomitant]
  4. OMEPRAZOLE. [Concomitant]
     Active Substance: OMEPRAZOLE
  5. VENTOLIN HFA [Concomitant]
     Active Substance: ALBUTEROL SULFATE
  6. INVOKANA [Suspect]
     Active Substance: CANAGLIFLOZIN
  7. VITAMIN D3 [Concomitant]
     Active Substance: CHOLECALCIFEROL
  8. CYCLOBENZAPRINE 10MG [Concomitant]
  9. METFORMIN [Concomitant]
     Active Substance: METFORMIN HYDROCHLORIDE
  10. IBUPROFEN 800MG [Concomitant]
     Active Substance: IBUPROFEN
  11. ESCITALOPRAM [Concomitant]
     Active Substance: ESCITALOPRAM OXALATE

REACTIONS (9)
  - Dehydration [None]
  - Myalgia [None]
  - Nausea [None]
  - Fatigue [None]
  - Asthenia [None]
  - Headache [None]
  - Abdominal pain upper [None]
  - Vulvovaginal pruritus [None]
  - Pollakiuria [None]

NARRATIVE: CASE EVENT DATE: 20180306
